FAERS Safety Report 4372839-2 (Version None)
Quarter: 2004Q2

REPORT INFORMATION
  Report Type: 
  Country: None (occurrence: None)
  Receive Date: 20040608
  Receipt Date: 20040601
  Transmission Date: 20050107
  Serious: Yes (Hospitalization, Other)
  Sender: FDA-Public Use
  Company Number: US-BRISTOL-MYERS SQUIBB COMPANY-12604237

PATIENT
  Age: 38 Year
  Sex: Female

DRUGS (10)
  1. SERZONE [Suspect]
     Indication: DEPRESSION
     Dates: start: 19980301, end: 19980901
  2. ATIVAN [Suspect]
  3. ZOLOFT [Concomitant]
  4. PREMARIN [Concomitant]
  5. PRILOSEC [Concomitant]
  6. PROCHLORPERAZINE [Concomitant]
  7. CORDRAN [Concomitant]
  8. LORAZEPAM [Concomitant]
  9. IMITREX [Concomitant]
  10. MEDROXYPROGESTERONE [Concomitant]

REACTIONS (7)
  - DEPRESSION [None]
  - HEPATIC MASS [None]
  - HEPATIC STEATOSIS [None]
  - HEPATITIS A [None]
  - HEPATITIS C VIRUS [None]
  - INTENTIONAL OVERDOSE [None]
  - SUICIDE ATTEMPT [None]
